FAERS Safety Report 7921365-X (Version None)
Quarter: 2011Q4

REPORT INFORMATION
  Report Type: 
  Country: None (occurrence: None)
  Receive Date: 20111117
  Receipt Date: 20111026
  Transmission Date: 20120403
  Serious: Yes (Hospitalization, Other)
  Sender: FDA-Public Use
  Company Number: US-ROCHE-GNE018008

PATIENT
  Sex: Male
  Weight: 40.544 kg

DRUGS (4)
  1. SOMATREM [Suspect]
     Indication: HYPOPITUITARISM
     Route: 058
     Dates: start: 19870603, end: 19940528
  2. DRISDOL [Concomitant]
     Route: 048
  3. SYNTHROID [Concomitant]
     Route: 048
  4. DILANTIN [Concomitant]
     Route: 048

REACTIONS (1)
  - BONE SARCOMA [None]
